FAERS Safety Report 7465881-6 (Version None)
Quarter: 2011Q2

REPORT INFORMATION
  Report Type: 
  Country: None (occurrence: None)
  Receive Date: 20110509
  Receipt Date: 20100422
  Transmission Date: 20111010
  Serious: No
  Sender: FDA-Public Use
  Company Number: US-ALEXION-A201000352

PATIENT
  Sex: Female
  Weight: 99.773 kg

DRUGS (2)
  1. SOLIRIS [Suspect]
     Dosage: 900 MG,
     Route: 042
     Dates: start: 20090909
  2. SOLIRIS [Suspect]
     Indication: PAROXYSMAL NOCTURNAL HAEMOGLOBINURIA
     Dosage: 450 MG, QW
     Route: 042
     Dates: start: 20090812, end: 20090902

REACTIONS (6)
  - HEADACHE [None]
  - INFLUENZA [None]
  - DIARRHOEA [None]
  - PAIN [None]
  - PLATELET COUNT DECREASED [None]
  - HAEMOGLOBIN DECREASED [None]
